FAERS Safety Report 17964466 (Version 1)
Quarter: 2020Q2

REPORT INFORMATION
  Report Type: Spontaneous
  Country: NO (occurrence: NO)
  Receive Date: 20200630
  Receipt Date: 20200630
  Transmission Date: 20200714
  Serious: Yes (Disabling)
  Sender: FDA-Public Use
  Company Number: NO-009507513-2006NOR009495

PATIENT
  Sex: Female

DRUGS (4)
  1. AVAMYS [Suspect]
     Active Substance: FLUTICASONE FUROATE
     Indication: SEASONAL ALLERGY
  2. AERIUS (DESLORATADINE) [Suspect]
     Active Substance: DESLORATADINE
     Indication: SEASONAL ALLERGY
     Route: 048
  3. AVAMYS [Suspect]
     Active Substance: FLUTICASONE FUROATE
     Indication: SEASONAL ALLERGY
  4. AERIUS (DESLORATADINE) [Suspect]
     Active Substance: DESLORATADINE
     Indication: SEASONAL ALLERGY

REACTIONS (6)
  - Nasopharyngitis [Unknown]
  - Asthma exercise induced [Unknown]
  - Chest discomfort [Unknown]
  - Therapeutic product effect incomplete [Unknown]
  - Hypotonia [Unknown]
  - Fatigue [Unknown]

NARRATIVE: CASE EVENT DATE: 2019
